FAERS Safety Report 15709474 (Version 3)
Quarter: 2018Q4

REPORT INFORMATION
  Report Type: Spontaneous
  Country: PH (occurrence: PH)
  Receive Date: 20181211
  Receipt Date: 20181227
  Transmission Date: 20190205
  Serious: Yes (Disabling, Other)
  Sender: FDA-Public Use
  Company Number: PH-PFIZER INC-2018502056

PATIENT
  Age: 43 Year
  Sex: Male

DRUGS (1)
  1. DILANTIN [Suspect]
     Active Substance: PHENYTOIN
     Indication: GENERALISED TONIC-CLONIC SEIZURE
     Dosage: 100 MG, 3X/DAY
     Dates: start: 1996, end: 20181205

REACTIONS (4)
  - Angina pectoris [Unknown]
  - Drug ineffective [Unknown]
  - Joint injury [Unknown]
  - Product dose omission [Unknown]

NARRATIVE: CASE EVENT DATE: 1996
